FAERS Safety Report 6026067-5 (Version None)
Quarter: 2008Q4

REPORT INFORMATION
  Report Type: 
  Country: None (occurrence: None)
  Receive Date: 20081230
  Receipt Date: 20081215
  Transmission Date: 20090506
  Serious: Yes (Death)
  Sender: FDA-Public Use
  Company Number: US020247

PATIENT
  Age: 34 Year
  Sex: Female
  Weight: 76.6579 kg

DRUGS (6)
  1. FENTORA [Suspect]
     Indication: HEADACHE
     Dosage: 400 UG BUCCAL
     Route: 002
     Dates: start: 20070516, end: 20070517
  2. LUNESTA [Concomitant]
  3. VALIUM [Concomitant]
  4. TRAZODONE HCL [Concomitant]
  5. CYMBALTA [Concomitant]
  6. AMBIEN [Concomitant]

REACTIONS (5)
  - ACCIDENTAL OVERDOSE [None]
  - DRUG TOXICITY [None]
  - SOMNOLENCE [None]
  - SUICIDAL BEHAVIOUR [None]
  - SUICIDE ATTEMPT [None]
